FAERS Safety Report 23179032 (Version 2)
Quarter: 2025Q1

REPORT INFORMATION
  Report Type: Spontaneous
  Country: US (occurrence: US)
  Receive Date: 20231113
  Receipt Date: 20250324
  Transmission Date: 20250409
  Serious: Yes (Other)
  Sender: PFIZER
  Company Number: US-PFIZER INC-202300359687

PATIENT
  Age: 77 Year
  Sex: Female

DRUGS (11)
  1. XELJANZ XR [Suspect]
     Active Substance: TOFACITINIB CITRATE
  2. CALCIUM [Concomitant]
     Active Substance: CALCIUM
  3. FOLIC ACID [Concomitant]
     Active Substance: FOLIC ACID
  4. FOSAMAX [Concomitant]
     Active Substance: ALENDRONATE SODIUM
  5. LOSARTAN [Concomitant]
     Active Substance: LOSARTAN
  6. MAGNESIUM OXIDE [Concomitant]
     Active Substance: MAGNESIUM OXIDE
  7. MOBIC [Concomitant]
     Active Substance: MELOXICAM
  8. SIMVASTATIN [Concomitant]
     Active Substance: SIMVASTATIN
  9. TYLENOL [Concomitant]
     Active Substance: ACETAMINOPHEN
  10. VITAMIN C [Concomitant]
     Active Substance: ASCORBIC ACID
  11. VITAMIN D3 [Concomitant]
     Active Substance: CHOLECALCIFEROL

REACTIONS (5)
  - Neuropathy peripheral [Unknown]
  - Feeling cold [Unknown]
  - Muscle spasms [Unknown]
  - Tooth disorder [Unknown]
  - Dyspepsia [Unknown]
